FAERS Safety Report 10006683 (Version 1)
Quarter: 2014Q1

REPORT INFORMATION
  Report Type: Spontaneous
  Country: US (occurrence: None)
  Receive Date: 20140228
  Receipt Date: 20140228
  Transmission Date: 20141002
  Serious: Yes (Other)
  Sender: FDA-Public Use
  Company Number: 225167

PATIENT
  Age: 65 Year
  Sex: Female

DRUGS (2)
  1. PICATO [Suspect]
     Indication: ACTINIC KERATOSIS
     Route: 061
     Dates: start: 20131129
  2. LIPITOR (ATORVASTATIN CALCIUM) [Concomitant]

REACTIONS (6)
  - Application site paraesthesia [None]
  - Application site pain [None]
  - Application site erythema [None]
  - Application site exfoliation [None]
  - Drug administration error [None]
  - Inappropriate schedule of drug administration [None]
